FAERS Safety Report 20594340 (Version 1)
Quarter: 2022Q1

REPORT INFORMATION
  Report Type: Spontaneous
  Country: DO (occurrence: None)
  Receive Date: 20220315
  Receipt Date: 20220315
  Transmission Date: 20220423
  Serious: Yes (Other)
  Sender: FDA-Public Use
  Company Number: DO-ROCHE-3047274

PATIENT
  Age: 31 Year
  Sex: Female

DRUGS (4)
  1. RITUXIMAB [Suspect]
     Active Substance: RITUXIMAB
     Indication: Diffuse large B-cell lymphoma
     Dosage: 4 CYCLES, DOSE AND FREQUENCY NOT REPORTED
     Route: 065
     Dates: start: 2018
  2. IFOSFAMIDE [Concomitant]
     Active Substance: IFOSFAMIDE
     Indication: Diffuse large B-cell lymphoma
     Dosage: 4 CYCLES, DOSE AND FREQUENCY NOT REPORTED
     Route: 065
     Dates: start: 2018
  3. CARBOPLATIN [Concomitant]
     Active Substance: CARBOPLATIN
     Indication: Diffuse large B-cell lymphoma
     Dosage: 4 CYCLES, DOSE AND FREQUENCY NOT REPORTED
     Route: 065
     Dates: start: 2018
  4. ETOPOSIDE [Concomitant]
     Active Substance: ETOPOSIDE
     Indication: Diffuse large B-cell lymphoma
     Dosage: 4 CYCLES, DOSE AND FREQUENCY NOT REPORTED
     Route: 065
     Dates: start: 2018

REACTIONS (2)
  - Disease progression [Unknown]
  - Drug ineffective [Unknown]
